FAERS Safety Report 4494614-0 (Version None)
Quarter: 2004Q4

REPORT INFORMATION
  Report Type: 
  Country: None (occurrence: None)
  Receive Date: 20041103
  Receipt Date: 20041027
  Transmission Date: 20050328
  Serious: Yes (Other)
  Sender: FDA-Public Use
  Company Number: 2004065884

PATIENT
  Age: 55 Year
  Sex: Male

DRUGS (7)
  1. NORVASC [Suspect]
     Indication: HYPERTENSION
     Dosage: 5 MG (5 MG, 1 IN 1 D), ORAL
     Route: 048
     Dates: start: 20010901
  2. VASCACE (CILAZAPRIL) [Suspect]
     Indication: HYPERTENSION
     Dosage: 5 MG (5 MG, 1 IN 1 D)
     Dates: start: 19980601
  3. VASCACE (CILAZAPRIL) [Suspect]
     Indication: PROTEINURIA
     Dosage: 5 MG (5 MG, 1 IN 1 D)
     Dates: start: 19980601
  4. ACETYLSALICYLIC ACID [Concomitant]
  5. METOPROLOL TARTRATE [Concomitant]
  6. PRAVASTATIN SODIUM [Concomitant]
  7. FENOFIBRATE [Concomitant]

REACTIONS (5)
  - DIABETIC NEPHROPATHY [None]
  - DIALYSIS [None]
  - GLOMERULONEPHRITIS [None]
  - HYPERTENSION [None]
  - THERAPY NON-RESPONDER [None]
